FAERS Safety Report 9228126 (Version 1)
Quarter: 2013Q2

REPORT INFORMATION
  Report Type: Spontaneous
  Country: ES (occurrence: ES)
  Receive Date: 20130412
  Receipt Date: 20130412
  Transmission Date: 20140414
  Serious: Yes (Other)
  Sender: FDA-Public Use
  Company Number: ES-ROCHE-1209814

PATIENT
  Age: 64 Year
  Sex: Male

DRUGS (3)
  1. METALYSE [Suspect]
     Indication: MYOCARDIAL INFARCTION
     Dosage: DAILY DOSE:6000 U, BOLUS
     Route: 065
  2. HEPARIN [Suspect]
     Indication: MYOCARDIAL INFARCTION
     Dosage: 3000 U BOLUS
     Route: 065
  3. AMIODARONE [Concomitant]
     Dosage: STRENGTH: 300 MG.100 ML 5% DEXTROSE
     Route: 065

REACTIONS (2)
  - Reperfusion arrhythmia [Recovering/Resolving]
  - Ventricular tachycardia [Recovering/Resolving]
